FAERS Safety Report 16321811 (Version 1)
Quarter: 2019Q2

REPORT INFORMATION
  Report Type: Spontaneous
  Country: CH (occurrence: CH)
  Receive Date: 20190516
  Receipt Date: 20190516
  Transmission Date: 20190711
  Serious: Yes (Other)
  Sender: FDA-Public Use
  Company Number: CH-PFIZER INC-2019206358

PATIENT

DRUGS (3)
  1. ALTHESIN [Suspect]
     Active Substance: ALFADOLONE ACETATE\ALFAXALONE
     Dosage: 3 ML, UNK
     Route: 064
  2. SUXAMETHONIUM [Suspect]
     Active Substance: SUCCINYLCHOLINE
     Dosage: 100 MG, UNK
     Route: 064
  3. ATROPINE SULFATE. [Suspect]
     Active Substance: ATROPINE SULFATE
     Dosage: 0.5 MG, UNK
     Route: 064

REACTIONS (2)
  - Hypotonia neonatal [Unknown]
  - Neonatal asphyxia [Unknown]
